FAERS Safety Report 5912358-2 (Version None)
Quarter: 2008Q4

REPORT INFORMATION
  Report Type: 
  Country: None (occurrence: None)
  Receive Date: 20081006
  Receipt Date: 20080918
  Transmission Date: 20090506
  Serious: Yes (Other)
  Sender: FDA-Public Use
  Company Number: ADE2008-0311

PATIENT
  Age: 60 Year
  Sex: Male
  Weight: 97 kg

DRUGS (9)
  1. BISOPROLOL FUMARATE [Suspect]
     Indication: VENTRICULAR TACHYCARDIA
     Dosage: 2.5MG - PO
     Route: 048
  2. BISOPROLOL FUMARATE [Suspect]
     Indication: VENTRICULAR TACHYCARDIA
     Dosage: 5MG - PO
     Route: 048
  3. ASPIRIN [Concomitant]
  4. CITALOPRAM 70MG [Concomitant]
  5. DOSULEPIN 25MG [Concomitant]
  6. LANSOPRAZOLE [Concomitant]
  7. NICORANDIL 20MG [Concomitant]
  8. PRAVASTATIN [Concomitant]
  9. AMIODARONE HYDROCHLORIDE [Concomitant]

REACTIONS (2)
  - ALVEOLITIS FIBROSING [None]
  - CONDITION AGGRAVATED [None]
